FAERS Safety Report 6315327-6 (Version None)
Quarter: 2009Q3

REPORT INFORMATION
  Report Type: 
  Country: None (occurrence: None)
  Receive Date: 20090819
  Receipt Date: 20090806
  Transmission Date: 20100115
  Serious: Yes (Other)
  Sender: FDA-Public Use
  Company Number: US-ELI_LILLY_AND_COMPANY-US200908001426

PATIENT
  Sex: Male

DRUGS (8)
  1. HUMATROPE [Suspect]
     Indication: GROWTH HORMONE DEFICIENCY
     Dosage: 0.5 MG, UNK
     Dates: start: 20070201, end: 20090101
  2. HUMATROPE [Suspect]
     Dosage: 0.6 MG, UNK
     Dates: start: 20090101
  3. NORVASC [Concomitant]
     Dosage: UNK, DAILY (1/D)
  4. ATENOLOL [Concomitant]
     Dosage: UNK, DAILY (1/D)
  5. AGGRENOX [Concomitant]
     Dosage: UNK, DAILY (1/D)
  6. KEPPRA [Concomitant]
     Dosage: UNK, DAILY (1/D)
  7. TESTIM [Concomitant]
     Dosage: UNK, DAILY (1/D)
  8. VICODIN [Concomitant]
     Dosage: UNK, AS NEEDED

REACTIONS (4)
  - AGITATION [None]
  - CEREBROVASCULAR ACCIDENT [None]
  - CONFUSIONAL STATE [None]
  - HERNIA REPAIR [None]
